FAERS Safety Report 6747134-4 (Version None)
Quarter: 2010Q2

REPORT INFORMATION
  Report Type: 
  Country: None (occurrence: None)
  Receive Date: 20100528
  Receipt Date: 20100521
  Transmission Date: 20101027
  Serious: Yes (Other)
  Sender: FDA-Public Use
  Company Number: JP-B.I. PHARMACEUTICALS,INC./RIDGEFIELD-2010-BP-05742NB

PATIENT
  Sex: Female
  Weight: 55 kg

DRUGS (1)
  1. MICARDIS [Suspect]
     Indication: HYPERTENSION
     Dosage: 40 MG
     Route: 048
     Dates: start: 20060731, end: 20080917

REACTIONS (3)
  - CEREBRAL INFARCTION [None]
  - HYPERKALAEMIA [None]
  - MYOCARDIAL INFARCTION [None]
